FAERS Safety Report 17325104 (Version 1)
Quarter: 2020Q1

REPORT INFORMATION
  Report Type: Spontaneous
  Country: FR (occurrence: FR)
  Receive Date: 20200127
  Receipt Date: 20200127
  Transmission Date: 20200409
  Serious: Yes (Other)
  Sender: FDA-Public Use
  Company Number: FR-ACCORD-170811

PATIENT
  Age: 30 Year
  Sex: Female
  Weight: 51 kg

DRUGS (4)
  1. SPECIAFOLDINE [Suspect]
     Active Substance: FOLIC ACID
     Route: 048
     Dates: start: 20080909, end: 20090401
  2. BIPROFENID LP [Suspect]
     Active Substance: KETOPROFEN
     Indication: ARTHRALGIA
     Dosage: STRENGTH-100 MG, PROLONGED-RELEASE SCORED TABLET
     Route: 048
     Dates: start: 20090304
  3. PARACETAMOL [Suspect]
     Active Substance: ACETAMINOPHEN
     Indication: ARTHRALGIA
     Route: 048
  4. METHOTREXATE. [Suspect]
     Active Substance: METHOTREXATE
     Indication: ARTHRALGIA
     Route: 048
     Dates: start: 20080909, end: 20090401

REACTIONS (1)
  - Hepatocellular injury [Recovered/Resolved]

NARRATIVE: CASE EVENT DATE: 20090401
